FAERS Safety Report 6237224-7 (Version None)
Quarter: 2009Q2

REPORT INFORMATION
  Report Type: 
  Country: None (occurrence: None)
  Receive Date: 20090619
  Receipt Date: 20090612
  Transmission Date: 20091009
  Serious: Yes (Hospitalization)
  Sender: FDA-Public Use
  Company Number: JP-BRISTOL-MYERS SQUIBB COMPANY-14669733

PATIENT
  Age: 59 Year
  Sex: Female
  Weight: 40 kg

DRUGS (11)
  1. ERBITUX [Suspect]
     Indication: COLON CANCER
     Route: 042
     Dates: start: 20081218, end: 20081218
  2. IRINOTECAN HCL [Suspect]
     Indication: COLON CANCER
     Route: 042
     Dates: start: 20081218, end: 20081218
  3. FLUOROURACIL [Suspect]
     Indication: COLON CANCER
     Dosage: ALSO TAKEN 2100 MG VIA INTRAVENOUS DRIP
     Route: 040
     Dates: start: 20081218, end: 20081218
  4. LEUCOVORIN CALCIUM [Suspect]
     Indication: COLON CANCER
     Route: 041
     Dates: start: 20081218, end: 20081218
  5. CHLOR-TRIMETON [Concomitant]
     Indication: PREMEDICATION
     Route: 042
     Dates: start: 20081218, end: 20081218
  6. DECADRON [Concomitant]
     Indication: PREMEDICATION
     Route: 042
     Dates: start: 20081218, end: 20081218
  7. GRANISETRON HCL [Concomitant]
     Indication: ANTIEMETIC SUPPORTIVE CARE
     Route: 042
     Dates: start: 20081218, end: 20081218
  8. DIAZEPAM [Concomitant]
     Indication: MENTAL DISORDER
     Route: 048
     Dates: start: 20081218, end: 20090101
  9. NAPROXEN [Concomitant]
     Indication: ANALGESIA
     Dosage: FORM = TABS
     Route: 048
     Dates: start: 20081208, end: 20081223
  10. MUCOSTA [Concomitant]
     Indication: GASTRIC MUCOSAL LESION
     Dosage: FORM = TABS
     Route: 048
     Dates: start: 20081208, end: 20090122
  11. OPSO [Concomitant]
     Indication: ANALGESIA
     Dosage: ORAL SOLN;1DF= 5-10 MG
     Route: 048
     Dates: start: 20081216, end: 20090119

REACTIONS (2)
  - HAEMOGLOBIN DECREASED [None]
  - PLATELET COUNT DECREASED [None]
